FAERS Safety Report 4698847-X (Version None)
Quarter: 2005Q2

REPORT INFORMATION
  Report Type: 
  Country: None (occurrence: None)
  Receive Date: 20050623
  Receipt Date: 20050607
  Transmission Date: 20051028
  Serious: Yes (Other)
  Sender: FDA-Public Use
  Company Number: L05-ISR-02128-01

PATIENT
  Sex: Female

DRUGS (3)
  1. CARBAMAZEPINE [Suspect]
     Indication: NEUROPATHIC PAIN
     Dosage: 1000 MG QD
  2. OXYBUTYNIN [Suspect]
  3. DANTROLENE [Suspect]

REACTIONS (2)
  - DRUG INTERACTION POTENTIATION [None]
  - DRUG TOXICITY [None]
